FAERS Safety Report 17680921 (Version 2)
Quarter: 2021Q4

REPORT INFORMATION
  Report Type: Spontaneous
  Country: CH (occurrence: None)
  Receive Date: 20200417
  Receipt Date: 20211220
  Transmission Date: 20220303
  Serious: Yes (Disabling, Other)
  Sender: FDA-Public Use
  Company Number: 2020SE52190

PATIENT
  Age: 26 Year
  Sex: Male

DRUGS (10)
  1. SEROQUEL [Suspect]
     Active Substance: QUETIAPINE FUMARATE
     Route: 048
  2. SEROQUEL [Suspect]
     Active Substance: QUETIAPINE FUMARATE
     Route: 048
  3. SEROQUEL [Suspect]
     Active Substance: QUETIAPINE FUMARATE
     Dosage: 50.0MG AS REQUIRED
     Route: 048
  4. SEROQUEL [Suspect]
     Active Substance: QUETIAPINE FUMARATE
     Dosage: 200.0MG AS REQUIRED
     Route: 048
  5. PALIPERIDONE PALMITATE [Suspect]
     Active Substance: PALIPERIDONE PALMITATE
     Route: 030
     Dates: start: 201909, end: 20191220
  6. CLOTHIAPINE [Suspect]
     Active Substance: CLOTHIAPINE
     Route: 048
     Dates: start: 20200415
  7. CLOTHIAPINE [Suspect]
     Active Substance: CLOTHIAPINE
     Dosage: 20.0MG AS REQUIRED
     Route: 048
     Dates: start: 20200415
  8. REMERON [Suspect]
     Active Substance: MIRTAZAPINE
     Route: 048
  9. REXULTI [Concomitant]
     Active Substance: BREXPIPRAZOLE
     Route: 048
     Dates: start: 201912
  10. TEMESTA [Concomitant]
     Route: 065

REACTIONS (2)
  - Erectile dysfunction [Recovered/Resolved]
  - Hyperprolactinaemia [Recovered/Resolved]
